FAERS Safety Report 6677501-9 (Version None)
Quarter: 2010Q2

REPORT INFORMATION
  Report Type: 
  Country: None (occurrence: None)
  Receive Date: 20100412
  Receipt Date: 20100406
  Transmission Date: 20101027
  Serious: Yes (Other)
  Sender: FDA-Public Use
  Company Number: B0646569A

PATIENT
  Age: 71 Year
  Sex: Male
  Weight: 63 kg

DRUGS (7)
  1. CUROCEF [Suspect]
     Indication: ANTIBIOTIC PROPHYLAXIS
     Route: 065
  2. ANXIOLIT [Concomitant]
     Route: 065
  3. COMEPRIL [Concomitant]
     Dosage: .5MG IN THE MORNING
     Route: 065
  4. THYREX [Concomitant]
     Dosage: .5MG IN THE MORNING
     Route: 065
  5. UROSIN [Concomitant]
     Dosage: 300MG IN THE MORNING
     Route: 065
  6. FINASTERID [Concomitant]
     Route: 065
  7. SIMVASTATIN [Concomitant]
     Route: 065

REACTIONS (1)
  - HYPOTENSION [None]
